FAERS Safety Report 9322930 (Version 2)
Quarter: 2013Q3

REPORT INFORMATION
  Report Type: Spontaneous
  Country: US (occurrence: US)
  Receive Date: 20130603
  Receipt Date: 20130712
  Transmission Date: 20140515
  Serious: No
  Sender: FDA-Public Use
  Company Number: US-009507513-1305USA013929

PATIENT
  Sex: Male

DRUGS (9)
  1. VICTRELIS [Suspect]
     Indication: HEPATITIS C
     Dosage: FOUR VICTRELIS 200 MG CAPSULES THREE TIMES A DAY WITH FOOD
     Route: 048
     Dates: end: 20130701
  2. PEGASYS [Suspect]
     Indication: HEPATITIS C
     Dosage: UNK
     Dates: end: 20130701
  3. RIBASPHERE [Suspect]
     Indication: HEPATITIS C
     Dosage: UNK
     Dates: end: 20130701
  4. ZOLOFT [Concomitant]
  5. NEURONTIN [Concomitant]
  6. WELLBUTRIN [Concomitant]
  7. CLONIDINE [Concomitant]
  8. IBUPROFEN [Concomitant]
  9. TYLENOL [Concomitant]

REACTIONS (5)
  - Erythema [Unknown]
  - Abdominal pain upper [Not Recovered/Not Resolved]
  - Diarrhoea [Not Recovered/Not Resolved]
  - Decreased appetite [Not Recovered/Not Resolved]
  - Depression [Not Recovered/Not Resolved]
